FAERS Safety Report 24638172 (Version 3)
Quarter: 2024Q4

REPORT INFORMATION
  Report Type: Report from Study
  Country: US (occurrence: US)
  Receive Date: 20241119
  Receipt Date: 20241218
  Transmission Date: 20250115
  Serious: Yes (Death, Other)
  Sender: TAIHO ONCOLOGY INC
  Company Number: US-TAIHOP-2024-010805

PATIENT
  Age: 62 Year
  Sex: Female

DRUGS (2)
  1. LONSURF [Suspect]
     Active Substance: TIPIRACIL HYDROCHLORIDE\TRIFLURIDINE
     Indication: Appendix cancer
     Dosage: FORM STRENGTH: 15 AND 20MG AND CYCLE UNKNOWN
     Route: 048
     Dates: start: 20241015
  2. LONSURF [Suspect]
     Active Substance: TIPIRACIL HYDROCHLORIDE\TRIFLURIDINE
     Dosage: FORM STRENGTH AND CYCLE UNKNOWN
     Route: 048

REACTIONS (5)
  - Death [Fatal]
  - Renal impairment [Unknown]
  - Fatigue [Unknown]
  - Decreased appetite [Unknown]
  - Inappropriate schedule of product administration [Unknown]

NARRATIVE: CASE EVENT DATE: 20241202
